FAERS Safety Report 4702859-7 (Version None)
Quarter: 2005Q2

REPORT INFORMATION
  Report Type: 
  Country: None (occurrence: None)
  Receive Date: 20050629
  Receipt Date: 20050517
  Transmission Date: 20051028
  Serious: Yes (Hospitalization, Other)
  Sender: FDA-Public Use
  Company Number: PHHO2005US07895

PATIENT
  Sex: Male
  Weight: 48 kg

DRUGS (11)
  1. DEXAMETHASONE [Suspect]
  2. METHOTREXATE [Concomitant]
  3. ONDANSETRON [Concomitant]
  4. PEGASPARGASE [Concomitant]
  5. SULFAMETHOXAZOLE [Concomitant]
  6. VINCRISTINE [Concomitant]
  7. CYCLOPHOSPHAMIDE [Concomitant]
  8. DAUNORUBICIN [Concomitant]
  9. G-CSF [Concomitant]
  10. HYDROXYZINE [Concomitant]
  11. GLEEVEC [Suspect]
     Indication: ACUTE LYMPHOCYTIC LEUKAEMIA
     Route: 048
     Dates: start: 20050301, end: 20050505

REACTIONS (6)
  - ANAEMIA [None]
  - FLAT AFFECT [None]
  - MUSCULAR WEAKNESS [None]
  - OEDEMA PERIPHERAL [None]
  - PAIN [None]
  - STARING [None]
